FAERS Safety Report 20587629 (Version 1)
Quarter: 2022Q1

REPORT INFORMATION
  Report Type: Spontaneous
  Country: US (occurrence: None)
  Receive Date: 20220314
  Receipt Date: 20220314
  Transmission Date: 20220423
  Serious: Yes (Other)
  Sender: FDA-Public Use
  Company Number: US-Orion Corporation ORION PHARMA-TREX2022-0042

PATIENT
  Sex: Female

DRUGS (1)
  1. METHOTREXATE [Suspect]
     Active Substance: METHOTREXATE
     Indication: Abortion
     Dosage: INGESTED
     Route: 048

REACTIONS (6)
  - Maternal exposure during pregnancy [Unknown]
  - Contraindicated product administered [Unknown]
  - Intentional product use issue [Unknown]
  - Premature delivery [Unknown]
  - Pre-eclampsia [Unknown]
  - Premature rupture of membranes [Unknown]
